FAERS Safety Report 17619288 (Version 1)
Quarter: 2020Q2

REPORT INFORMATION
  Report Type: Spontaneous
  Country: GB (occurrence: GB)
  Receive Date: 20200402
  Receipt Date: 20200402
  Transmission Date: 20200713
  Serious: No
  Sender: FDA-Public Use
  Company Number: GB-009507513-2003GBR011078

PATIENT
  Sex: Female

DRUGS (1)
  1. ELOCON [Suspect]
     Active Substance: MOMETASONE FUROATE
     Indication: RASH
     Dosage: UNK

REACTIONS (3)
  - Intercepted product prescribing error [Unknown]
  - Product label confusion [Unknown]
  - No adverse event [Unknown]
